FAERS Safety Report 8505923-X (Version None)
Quarter: 2012Q3

REPORT INFORMATION
  Report Type: 
  Country: None (occurrence: None)
  Receive Date: 20120712
  Receipt Date: 20120705
  Transmission Date: 20120928
  Serious: Yes (Hospitalization)
  Sender: FDA-Public Use
  Company Number: DE-BAYER-2012-040154

PATIENT
  Age: 86 Year
  Sex: Female
  Weight: 65 kg

DRUGS (7)
  1. CANDESARTAN [Concomitant]
     Indication: HYPERTENSION
     Dosage: 32 MG, QD
  2. XARELTO [Interacting]
     Indication: ATRIAL FIBRILLATION
     Dosage: 20 MG, QD
     Route: 048
     Dates: start: 20120201, end: 20120423
  3. NEPRESOL [Concomitant]
     Indication: HYPERTENSION
     Dosage: 25 MG, BID
  4. XARELTO [Interacting]
     Indication: CEREBROVASCULAR ACCIDENT PROPHYLAXIS
  5. ASPIRIN [Suspect]
     Dosage: 100 MG, QD
     Route: 048
  6. HYDROCHLOROTHIAZIDE [Concomitant]
     Indication: HYPERTENSION
     Dosage: 12.5 MG QD
  7. CORDANUM [Concomitant]
     Indication: HYPERTENSION
     Dosage: 100 MG, BID

REACTIONS (6)
  - DYSPNOEA [None]
  - ASTHENIA [None]
  - DECREASED APPETITE [None]
  - PALLOR [None]
  - NAUSEA [None]
  - IRON DEFICIENCY ANAEMIA [None]
